FAERS Safety Report 12126482 (Version 1)
Quarter: 2016Q1

REPORT INFORMATION
  Report Type: Spontaneous
  Country: US (occurrence: US)
  Receive Date: 20160229
  Receipt Date: 20160229
  Transmission Date: 20160526
  Serious: Yes (Hospitalization, Other)
  Sender: FDA-Public Use
  Company Number: US-SMITH AND NEPHEW, INC-2016SMT00148

PATIENT
  Age: 68 Year
  Sex: Male
  Weight: 78.91 kg

DRUGS (4)
  1. METFORMIN HYDROCHLORIDE. [Concomitant]
     Active Substance: METFORMIN HYDROCHLORIDE
     Dosage: UNK
     Dates: start: 201511
  2. UNSPECIFIED BLOOD THINNER [Concomitant]
     Active Substance: UNSPECIFIED INGREDIENT
     Dosage: UNK
     Dates: start: 201511
  3. REGRANEX [Suspect]
     Active Substance: BECAPLERMIN
     Indication: DIABETIC FOOT
     Dosage: UNK, 1X/DAY
     Route: 061
     Dates: start: 201601, end: 201601
  4. ATORVASTATIN [Concomitant]
     Active Substance: ATORVASTATIN
     Dosage: UNK
     Dates: start: 201511

REACTIONS (7)
  - Vascular pseudoaneurysm [Recovering/Resolving]
  - Staphylococcal infection [Unknown]
  - Incision site abscess [Recovering/Resolving]
  - Malaise [Unknown]
  - Incision site haemorrhage [Unknown]
  - Weight decreased [Unknown]
  - Wound dehiscence [Unknown]

NARRATIVE: CASE EVENT DATE: 2016
